FAERS Safety Report 24254605 (Version 3)
Quarter: 2024Q4

REPORT INFORMATION
  Report Type: Report from Study
  Country: US (occurrence: US)
  Receive Date: 20240827
  Receipt Date: 20241110
  Transmission Date: 20250115
  Serious: Yes (Hospitalization)
  Sender: AMGEN
  Company Number: US-HORIZON THERAPEUTICS-HZN-2024-001332

PATIENT
  Age: 32 Year
  Sex: Female

DRUGS (7)
  1. RAVICTI [Suspect]
     Active Substance: GLYCEROL PHENYLBUTYRATE
     Indication: Arginase deficiency
     Dosage: 3 ML, TID (3.3G)
     Route: 048
     Dates: start: 20231106
  2. RAVICTI [Suspect]
     Active Substance: GLYCEROL PHENYLBUTYRATE
     Indication: Urea cycle disorder
     Dosage: TAKING TWICE A DAY
     Route: 048
  3. RAVICTI [Suspect]
     Active Substance: GLYCEROL PHENYLBUTYRATE
     Dosage: 3 MILLILITER, TID, (1. 1 GRAMS/M L 25M L BT)
     Route: 048
  4. RAVICTI [Suspect]
     Active Substance: GLYCEROL PHENYLBUTYRATE
     Dosage: 3 MILLILITER, TID (3.3 G TOTAL/ 12/25ML BT/ TAKE 3 ML (3.3 G TOTAL) BY MOUTH IN THE MORNING, AFTERNO
     Route: 048
  5. RAVICTI [Suspect]
     Active Substance: GLYCEROL PHENYLBUTYRATE
     Dosage: 2 MILLILITER, TID
     Route: 048
  6. CALCIUM [Concomitant]
     Active Substance: CALCIUM
     Dosage: 500 MILLIGRAM
     Route: 065
  7. VITAMINS [Concomitant]
     Active Substance: VITAMINS
     Dosage: UNK
     Route: 065

REACTIONS (10)
  - Hepatic infection [Unknown]
  - Urinary tract infection [Unknown]
  - Muscle spasms [Recovering/Resolving]
  - Nausea [Unknown]
  - Vomiting [Recovered/Resolved]
  - Decreased appetite [Unknown]
  - Illness [Unknown]
  - Bacterial infection [Recovering/Resolving]
  - Inappropriate schedule of product administration [Unknown]
  - Product use complaint [Unknown]

NARRATIVE: CASE EVENT DATE: 20240101
